FAERS Safety Report 11832016 (Version 1)
Quarter: 2015Q4

REPORT INFORMATION
  Report Type: Spontaneous
  Country: US (occurrence: None)
  Receive Date: 20151211
  Receipt Date: 20151211
  Transmission Date: 20160305
  Serious: Yes (Life-Threatening, Disabling)
  Sender: FDA-Public Use
  Company Number: None

PATIENT
  Age: 37 Year
  Sex: Female
  Weight: 117.03 kg

DRUGS (9)
  1. REMERON [Concomitant]
     Active Substance: MIRTAZAPINE
  2. INVEGA [Suspect]
     Active Substance: PALIPERIDONE
     Indication: SCHIZOPHRENIA
     Dosage: 1 PILL ONCE DAILY
     Route: 048
     Dates: start: 20151001, end: 20151210
  3. ATORVASTATIN [Concomitant]
     Active Substance: ATORVASTATIN
  4. LOVASTATIN. [Concomitant]
     Active Substance: LOVASTATIN
  5. LEVOTHYROXINE. [Concomitant]
     Active Substance: LEVOTHYROXINE
  6. INVEGA [Concomitant]
     Active Substance: PALIPERIDONE
  7. BENADRYL [Concomitant]
     Active Substance: DIPHENHYDRAMINE HYDROCHLORIDE
  8. EFFEXOR XR [Concomitant]
     Active Substance: VENLAFAXINE HYDROCHLORIDE
  9. LORATADINE. [Concomitant]
     Active Substance: LORATADINE

REACTIONS (7)
  - Menstrual disorder [None]
  - Tremor [None]
  - Heart rate increased [None]
  - Balance disorder [None]
  - Menorrhagia [None]
  - Asthenia [None]
  - Fatigue [None]

NARRATIVE: CASE EVENT DATE: 20151210
